FAERS Safety Report 19900468 (Version 1)
Quarter: 2021Q3

REPORT INFORMATION
  Report Type: Spontaneous
  Country: US (occurrence: US)
  Receive Date: 20210929
  Receipt Date: 20210929
  Transmission Date: 20211014
  Serious: No
  Sender: FDA-Public Use
  Company Number: None

PATIENT
  Age: 73 Year
  Sex: Male
  Weight: 86 kg

DRUGS (1)
  1. BACLOFEN (BACLOFEN 10MG TAB) [Suspect]
     Active Substance: BACLOFEN
     Indication: PAIN
     Route: 048
     Dates: start: 20210723, end: 20210728

REACTIONS (6)
  - Hypertension [None]
  - Seizure [None]
  - Intentional product use issue [None]
  - Hypertensive encephalopathy [None]
  - Dyskinesia [None]
  - Electrocardiogram abnormal [None]

NARRATIVE: CASE EVENT DATE: 20210728
